FAERS Safety Report 25818277 (Version 2)
Quarter: 2025Q4

REPORT INFORMATION
  Report Type: Report from Study
  Country: JP (occurrence: JP)
  Receive Date: 20250918
  Receipt Date: 20251004
  Transmission Date: 20260118
  Serious: Yes (Other)
  Sender: TEVA
  Company Number: JP-OTSUKA-2024_021852

PATIENT
  Age: 53 Year
  Sex: Female

DRUGS (36)
  1. AJOVY [Suspect]
     Active Substance: FREMANEZUMAB-VFRM
     Indication: Migraine prophylaxis
     Dosage: 225 MG/SHOT
     Route: 058
     Dates: start: 20240316, end: 20240316
  2. AJOVY [Suspect]
     Active Substance: FREMANEZUMAB-VFRM
     Indication: Migraine prophylaxis
     Dosage: 225 MG/SHOT
     Route: 058
     Dates: start: 20230831, end: 20230831
  3. AJOVY [Suspect]
     Active Substance: FREMANEZUMAB-VFRM
     Indication: Migraine prophylaxis
     Dosage: 225 MG/SHOT
     Route: 058
     Dates: start: 20240413, end: 20240413
  4. AJOVY [Suspect]
     Active Substance: FREMANEZUMAB-VFRM
     Indication: Migraine prophylaxis
     Dosage: 225 MG/SHOT
     Route: 058
     Dates: start: 20240831, end: 20240831
  5. AJOVY [Suspect]
     Active Substance: FREMANEZUMAB-VFRM
     Indication: Migraine prophylaxis
     Dosage: 225 MG/SHOT
     Route: 058
     Dates: start: 20240608, end: 20240608
  6. AJOVY [Suspect]
     Active Substance: FREMANEZUMAB-VFRM
     Indication: Migraine prophylaxis
     Dosage: 225 MG/SHOT
     Route: 058
     Dates: start: 20231028, end: 20231028
  7. AJOVY [Suspect]
     Active Substance: FREMANEZUMAB-VFRM
     Indication: Migraine prophylaxis
     Dosage: 225 MG/SHOT
     Route: 058
     Dates: start: 20240511, end: 20240511
  8. AJOVY [Suspect]
     Active Substance: FREMANEZUMAB-VFRM
     Indication: Migraine prophylaxis
     Dosage: 225 MG/SHOT
     Route: 058
     Dates: start: 20240928, end: 20240928
  9. AJOVY [Suspect]
     Active Substance: FREMANEZUMAB-VFRM
     Indication: Migraine prophylaxis
     Dosage: 225 MG/SHOT
     Route: 058
     Dates: start: 20241228, end: 20241228
  10. AJOVY [Suspect]
     Active Substance: FREMANEZUMAB-VFRM
     Indication: Migraine prophylaxis
     Dosage: 225 MG/SHOT
     Route: 058
     Dates: start: 20231125, end: 20231125
  11. AJOVY [Suspect]
     Active Substance: FREMANEZUMAB-VFRM
     Indication: Migraine prophylaxis
     Dosage: 225 MG/SHOT
     Route: 058
     Dates: start: 20231226, end: 20231226
  12. AJOVY [Suspect]
     Active Substance: FREMANEZUMAB-VFRM
     Indication: Migraine prophylaxis
     Dosage: 225 MG/SHOT
     Route: 058
     Dates: start: 20240803, end: 20240803
  13. AJOVY [Suspect]
     Active Substance: FREMANEZUMAB-VFRM
     Indication: Migraine prophylaxis
     Dosage: 225 MG/SHOT
     Route: 058
     Dates: start: 20230805, end: 20230805
  14. AJOVY [Suspect]
     Active Substance: FREMANEZUMAB-VFRM
     Indication: Migraine prophylaxis
     Dosage: 225 MG/SHOT
     Route: 058
     Dates: start: 20241026, end: 20241026
  15. AJOVY [Suspect]
     Active Substance: FREMANEZUMAB-VFRM
     Indication: Migraine prophylaxis
     Dosage: 225 MG/SHOT
     Route: 058
     Dates: start: 20240217, end: 20240217
  16. AJOVY [Suspect]
     Active Substance: FREMANEZUMAB-VFRM
     Indication: Migraine prophylaxis
     Dosage: 225 MG/SHOT
     Route: 058
     Dates: start: 20240706, end: 20240706
  17. AJOVY [Suspect]
     Active Substance: FREMANEZUMAB-VFRM
     Indication: Migraine prophylaxis
     Dosage: 225 MG/SHOT
     Route: 058
     Dates: start: 20240120, end: 20240120
  18. AJOVY [Suspect]
     Active Substance: FREMANEZUMAB-VFRM
     Indication: Migraine prophylaxis
     Dosage: 225 MG/SHOT
     Route: 058
     Dates: start: 20241130, end: 20241130
  19. AJOVY [Suspect]
     Active Substance: FREMANEZUMAB-VFRM
     Indication: Migraine prophylaxis
     Dosage: 225 MG/SHOT
     Route: 058
     Dates: start: 20230930, end: 20230930
  20. REBAMIPIDE [Suspect]
     Active Substance: REBAMIPIDE
     Indication: Prophylaxis
     Dosage: 100 MG, QD
     Route: 048
  21. VALPROATE SODIUM [Concomitant]
     Active Substance: VALPROATE SODIUM
     Indication: Migraine
     Dosage: 200 MG, QD, 200 MG/DAY, FROM 4 WEEKS PRIOR TO THE START OF AJOVY ADMINISTRATION
     Route: 048
     Dates: end: 20241228
  22. NAPROXEN SODIUM [Concomitant]
     Active Substance: NAPROXEN SODIUM
     Indication: Headache
     Dosage: 100 MG, QD, FROM 4 WEEKS PRIOR TO THE START OF AJOVY ADMINISTRATION
     Route: 048
  23. RIZATRIPTAN BENZOATE [Concomitant]
     Active Substance: RIZATRIPTAN BENZOATE
     Indication: Headache
     Dosage: 10 MG, QD, 10 MG/DAY, FROM 4 WEEKS PRIOR TO THE START OF AJOVY ADMINISTRATION
     Route: 048
     Dates: end: 20231027
  24. MAXALT [Concomitant]
     Active Substance: RIZATRIPTAN BENZOATE
     Indication: Headache
     Dosage: 10 MG, QD, 10 MG/DAY
     Route: 048
     Dates: start: 20231028
  25. AMITRIPTYLINE HYDROCHLORIDE [Concomitant]
     Active Substance: AMITRIPTYLINE HYDROCHLORIDE
     Indication: Migraine
     Dosage: 25 MG, QD, 25 MG/DAY, FROM 4 WEEKS PRIOR TO THE START OF AJOVY ADMINISTRATION
     Route: 048
     Dates: end: 20230830
  26. PREDONINE [Concomitant]
     Active Substance: PREDNISOLONE
     Indication: Seronegative arthritis
     Dosage: 2.5 MG, FROM 4 WEEKS PRIOR TO THE START OF AJOVY ADMINISTRATION
     Route: 048
     Dates: end: 20230830
  27. PREDONINE [Concomitant]
     Active Substance: PREDNISOLONE
     Indication: Seronegative arthritis
     Dosage: 5 MG/DAY
     Route: 048
     Dates: start: 20241026, end: 20241227
  28. CANDESARTAN CILEXETIL [Concomitant]
     Active Substance: CANDESARTAN CILEXETIL
     Indication: Hypertension
     Dosage: 8 MG, QD, 8 MG/DAY, FROM 4 WEEKS PRIOR TO THE START OF AJOVY ADMINISTRATION
     Route: 048
  29. AMLODIPINE [Concomitant]
     Active Substance: AMLODIPINE BESYLATE
     Indication: Hypertension
     Dosage: 2.5 MG, QD, 2.5 MG/DAY, FROM 4 WEEKS PRIOR TO THE START OF AJOVY ADMINISTRATION
     Route: 048
  30. AMITRIPTYLINE [Concomitant]
     Active Substance: AMITRIPTYLINE
     Indication: Migraine
     Dosage: 25 MG, QD, STARTED FROM 4 WEEKS PRIOR TO THE START OF AJOVY ADMINISTRATION
     Route: 048
     Dates: end: 20230830
  31. AIMOVIG [Concomitant]
     Active Substance: ERENUMAB-AOOE
     Indication: Migraine
     Dosage: 70 MG/DAY
     Dates: start: 20220611, end: 20230708
  32. AIMOVIG [Concomitant]
     Active Substance: ERENUMAB-AOOE
     Indication: Migraine
     Dosage: 70 MG/DAY
     Dates: start: 20250125
  33. HERBALS [Concomitant]
     Active Substance: HERBALS
     Indication: Migraine
     Dosage: 5 G/DAY
     Route: 048
     Dates: start: 20240120, end: 20240510
  34. NAPROXEN [Concomitant]
     Active Substance: NAPROXEN
     Indication: Headache
     Dosage: 100 MG/DAY
     Route: 048
  35. Tsumura goreisan [Concomitant]
     Indication: Product used for unknown indication
     Dosage: 6 G/DAY
     Route: 048
     Dates: start: 20240511
  36. Tsumura goreisan [Concomitant]
     Indication: Product used for unknown indication
     Dosage: 6 G/DAY
     Route: 048
     Dates: start: 20230708, end: 20240119

REACTIONS (6)
  - Seronegative arthritis [Recovering/Resolving]
  - Product use in unapproved indication [Unknown]
  - Inappropriate schedule of product administration [Unknown]
  - Inappropriate schedule of product administration [Unknown]
  - Therapeutic product effect incomplete [Unknown]
  - Inappropriate schedule of product administration [Unknown]

NARRATIVE: CASE EVENT DATE: 20240120
